FAERS Safety Report 17781324 (Version 4)
Quarter: 2020Q3

REPORT INFORMATION
  Report Type: Spontaneous
  Country: US (occurrence: US)
  Receive Date: 20200513
  Receipt Date: 20200702
  Transmission Date: 20201102
  Serious: No
  Sender: FDA-Public Use
  Company Number: US-TOLMAR, INC.-20US021264

PATIENT
  Age: 14 Year
  Sex: Female

DRUGS (1)
  1. CLINDAMYCIN PHOSPHATE AND BENZOYL PEROXIDE 1% / 5% [Suspect]
     Active Substance: BENZOYL PEROXIDE\CLINDAMYCIN PHOSPHATE
     Indication: PRODUCT USED FOR UNKNOWN INDICATION
     Dosage: 1 DOSAGE FORM, BID
     Route: 061
     Dates: start: 201909

REACTIONS (3)
  - Skin burning sensation [Unknown]
  - Erythema [Unknown]
  - Product odour abnormal [Unknown]

NARRATIVE: CASE EVENT DATE: 201909
